FAERS Safety Report 4730544-4 (Version None)
Quarter: 2005Q3

REPORT INFORMATION
  Report Type: 
  Country: None (occurrence: None)
  Receive Date: 20050725
  Receipt Date: 20050210
  Transmission Date: 20060218
  Serious: No
  Sender: FDA-Public Use
  Company Number: USA050290527

PATIENT
  Age: 41 Year
  Sex: Female

DRUGS (1)
  1. STRATTERA [Suspect]
     Dosage: 18 MG

REACTIONS (3)
  - CONJUNCTIVITIS ALLERGIC [None]
  - EYE IRRITATION [None]
  - MEDICATION ERROR [None]
